FAERS Safety Report 9080116 (Version 1)
Quarter: 2013Q1

REPORT INFORMATION
  Report Type: Report from Study
  Country: US (occurrence: US)
  Receive Date: 20130130
  Receipt Date: 20130130
  Transmission Date: 20140127
  Serious: Yes (Hospitalization)
  Sender: FDA-Public Use
  Company Number: US-ABBOTT-13P-163-1039550-00

PATIENT
  Age: 63 None
  Sex: Male
  Weight: 131.66 kg

DRUGS (3)
  1. HUMIRA [Suspect]
     Indication: PSORIATIC ARTHROPATHY
     Dates: start: 2010
  2. LISINOPRIL [Concomitant]
     Indication: HYPERTENSION
  3. FLOMAX [Concomitant]
     Indication: BENIGN PROSTATIC HYPERPLASIA

REACTIONS (3)
  - Animal bite [Recovering/Resolving]
  - Muscle spasms [Recovering/Resolving]
  - Asthenia [Not Recovered/Not Resolved]
